FAERS Safety Report 8149444 (Version 2)
Quarter: 2013Q1

REPORT INFORMATION
  Report Type: Spontaneous
  Country: US (occurrence: US)
  Receive Date: 20110922
  Receipt Date: 20130110
  Transmission Date: 20140127
  Serious: Yes (Other)
  Sender: FDA-Public Use
  Company Number: US-ROCHE-783541

PATIENT
  Age: 21 Year
  Sex: Female
  Weight: 52.2 kg

DRUGS (3)
  1. ACCUTANE [Suspect]
     Indication: ACNE
     Dosage: FREQUENCY: QD; DOSE 20 MG AND 40 MG ALTERNATE DAY
     Route: 048
     Dates: start: 200109, end: 200203
  2. ACCUTANE [Suspect]
     Dosage: 20 MG - 40 MG
     Route: 048
  3. ACCUTANE [Suspect]
     Dosage: 20 MG - 40 MG
     Route: 048
     Dates: start: 20030102, end: 200304

REACTIONS (11)
  - Crohn^s disease [Unknown]
  - Proctitis ulcerative [Not Recovered/Not Resolved]
  - Inflammatory bowel disease [Unknown]
  - Stress [Unknown]
  - Depression [Unknown]
  - Irritable bowel syndrome [Unknown]
  - Headache [Unknown]
  - Dry skin [Unknown]
  - Lip dry [Unknown]
  - Chapped lips [Unknown]
  - Xerosis [Unknown]
